FAERS Safety Report 25898164 (Version 1)
Quarter: 2025Q4

REPORT INFORMATION
  Report Type: Spontaneous
  Country: EU (occurrence: EU)
  Receive Date: 20251008
  Receipt Date: 20251008
  Transmission Date: 20260117
  Serious: Yes (Hospitalization)
  Sender: ELI LILLY AND COMPANY
  Company Number: None

PATIENT
  Age: 62 Year
  Sex: Male

DRUGS (2)
  1. INSULIN GLARGINE [Suspect]
     Active Substance: INSULIN GLARGINE
     Indication: Type 1 diabetes mellitus
     Dosage: 9 INTERNATIONAL UNIT, UNKNOWN
     Route: 058
     Dates: start: 20250901, end: 20250902
  2. HUMALOG [Suspect]
     Active Substance: INSULIN LISPRO
     Indication: Type 1 diabetes mellitus
     Dosage: 200 INTERNATIONAL UNIT, UNKNOWN
     Route: 058
     Dates: start: 20250902, end: 20250902

REACTIONS (3)
  - Hyperglycaemia [Recovered/Resolved]
  - Hypoglycaemia [Recovered/Resolved]
  - Medication error [Recovered/Resolved]

NARRATIVE: CASE EVENT DATE: 20250901
